FAERS Safety Report 7806458-X (Version None)
Quarter: 2011Q4

REPORT INFORMATION
  Report Type: 
  Country: None (occurrence: None)
  Receive Date: 20111011
  Receipt Date: 20111003
  Transmission Date: 20120403
  Serious: Yes (Hospitalization)
  Sender: FDA-Public Use
  Company Number: ES-MPIJNJ-2011-04241

PATIENT

DRUGS (6)
  1. PREDNISONE [Suspect]
     Indication: MULTIPLE MYELOMA
     Dosage: 90 MG, UNK
     Route: 048
     Dates: start: 20110622, end: 20110625
  2. MELPHALAN HYDROCHLORIDE [Suspect]
     Indication: MULTIPLE MYELOMA
     Dosage: 16 MG, UNK
     Route: 048
     Dates: start: 20110622, end: 20110625
  3. VELCADE [Suspect]
     Dosage: 1.7 MG, UNK
     Route: 042
     Dates: start: 20110712, end: 20110902
  4. REVLIMID [Suspect]
     Indication: MULTIPLE MYELOMA
     Dosage: 25 MG, UNK
     Route: 048
     Dates: start: 20110803, end: 20110823
  5. VELCADE [Suspect]
     Indication: MULTIPLE MYELOMA
     Dosage: 2.2 MG, UNK
     Route: 042
     Dates: start: 20110622
  6. DEXAMETHASONE [Suspect]
     Indication: MULTIPLE MYELOMA
     Dosage: 40 MG, UNK
     Route: 048
     Dates: start: 20110803, end: 20110824

REACTIONS (8)
  - PYREXIA [None]
  - TREMOR [None]
  - MALAISE [None]
  - OEDEMA [None]
  - HYPOALBUMINAEMIA [None]
  - DIARRHOEA [None]
  - HYPOPROTEINAEMIA [None]
  - GASTROENTERITIS [None]
